FAERS Safety Report 12647417 (Version 1)
Quarter: 2016Q3

REPORT INFORMATION
  Report Type: Spontaneous
  Country: US (occurrence: None)
  Receive Date: 20160811
  Receipt Date: 20160811
  Transmission Date: 20161109
  Serious: Yes (Other)
  Sender: FDA-Public Use
  Company Number: None

PATIENT
  Age: 51 Year
  Sex: Female
  Weight: 48.99 kg

DRUGS (1)
  1. CHLORHEXIDINE GLUCONATE. [Suspect]
     Active Substance: CHLORHEXIDINE GLUCONATE
     Indication: PERIODONTAL OPERATION
     Route: 048
     Dates: start: 20160804, end: 20160806

REACTIONS (2)
  - Burning sensation [None]
  - Paraesthesia oral [None]

NARRATIVE: CASE EVENT DATE: 20160804
